FAERS Safety Report 16869619 (Version 3)
Quarter: 2019Q4

REPORT INFORMATION
  Report Type: Spontaneous
  Country: US (occurrence: US)
  Receive Date: 20190930
  Receipt Date: 20191127
  Transmission Date: 20200122
  Serious: Yes (Hospitalization)
  Sender: FDA-Public Use
  Company Number: US-VERTEX PHARMACEUTICALS-2019-009232

PATIENT
  Age: 8 Year
  Sex: Female
  Weight: 19 kg

DRUGS (14)
  1. SODIUM CHLORIDE. [Concomitant]
     Active Substance: SODIUM CHLORIDE
     Dosage: BID
     Route: 055
  2. PULMOZYME [Concomitant]
     Active Substance: DORNASE ALFA
     Dosage: UNK, QD
  3. AZELASTINE. [Concomitant]
     Active Substance: AZELASTINE HYDROCHLORIDE
     Dosage: SPRAY IN EACH NOSTRIL, BID
     Route: 045
  4. CYPROHEPTADINE. [Concomitant]
     Active Substance: CYPROHEPTADINE
     Dosage: 1 TABLET, BID
  5. FLUTICASONE. [Concomitant]
     Active Substance: FLUTICASONE
     Dosage: ONCE IN EACH NOSTRIL, QD
     Route: 045
  6. SODIUM CHLORIDE. [Concomitant]
     Active Substance: SODIUM CHLORIDE
     Dosage: 0.9% 2-3 TIMES DAILY
     Route: 055
  7. ALBUTEROL SULFATE. [Concomitant]
     Active Substance: ALBUTEROL SULFATE
     Dosage: 2.5MG/ 3ML, TID
  8. RANITIDINE. [Concomitant]
     Active Substance: RANITIDINE
     Dosage: 75 MG, BID
  9. ERYTHROMYCIN. [Concomitant]
     Active Substance: ERYTHROMYCIN
     Dosage: MONDAY, WEDNESDAY, FRIDAY.
  10. AZITHROMYCIN ANHYDROUS. [Concomitant]
     Active Substance: AZITHROMYCIN ANHYDROUS
     Dosage: 250 MG, MWF
     Route: 048
  11. ZENPEP [Concomitant]
     Active Substance: PANCRELIPASE AMYLASE\PANCRELIPASE LIPASE\PANCRELIPASE PROTEASE
     Dosage: UNK
  12. SYMDEKO [Suspect]
     Active Substance: IVACAFTOR\TEZACAFTOR
     Indication: CYSTIC FIBROSIS
     Dosage: 50MG TEZACAFTOR/75 MG IVACAFTOR AM; 75MG IVACAFTOR PM
     Route: 048
     Dates: start: 20190829
  13. CETIRIZINE [Concomitant]
     Active Substance: CETIRIZINE HYDROCHLORIDE
     Dosage: UNK, QD
     Route: 048
  14. BETHKIS [Concomitant]
     Active Substance: TOBRAMYCIN
     Dosage: UNK, BID

REACTIONS (3)
  - Pyrexia [Not Recovered/Not Resolved]
  - Pneumonia [Unknown]
  - Cough [Unknown]

NARRATIVE: CASE EVENT DATE: 2019
